FAERS Safety Report 19901858 (Version 1)
Quarter: 2021Q3

REPORT INFORMATION
  Report Type: Spontaneous
  Country: BR (occurrence: BR)
  Receive Date: 20210929
  Receipt Date: 20210929
  Transmission Date: 20211014
  Serious: Yes (Other)
  Sender: FDA-Public Use
  Company Number: BR-ASCEND THERAPEUTICS US, LLC-2118966

PATIENT
  Age: 41 Year
  Sex: Female
  Weight: 64.5 kg

DRUGS (14)
  1. ESTROGEL [Suspect]
     Active Substance: ESTRADIOL
     Indication: OESTRADIOL DECREASED
     Route: 050
     Dates: start: 20210730
  2. UTROGESTAN [Suspect]
     Active Substance: PROGESTERONE
     Route: 067
     Dates: start: 20210730, end: 20210824
  3. AAS(ACETYLSALICYLIC ACID)(100 MILLIGRAM, TABLETS) [Concomitant]
     Route: 048
     Dates: start: 20210730, end: 20210914
  4. LIPOFUNDIN(XYLITOL, GLYCINE MAX SEED OIL) [Concomitant]
     Route: 042
     Dates: start: 20210804
  5. DUPHASTON(DYDROGESTERONE)(10 MILLIGRAM, TABLETS) [Concomitant]
     Route: 048
     Dates: start: 20210730
  6. UTROGESTAN [Suspect]
     Active Substance: PROGESTERONE
     Route: 048
     Dates: start: 20210825
  7. OESTROGEL(OESTROGEL)(ESTRADIOL)?ROUTE: IN THE BELLY AND FOREARM [Suspect]
     Active Substance: ESTRADIOL
     Route: 050
     Dates: start: 20210730
  8. CLEXANE(ENOXAPARIN SODIUM)(40 MILLIGRAM) [Concomitant]
     Route: 058
     Dates: start: 20210730, end: 20210914
  9. PRIMOGYNA(ESTRADIOL VALERATE)(2 MILLIGRAM, TABLETS) [Concomitant]
     Route: 048
     Dates: start: 20210730, end: 20210823
  10. PREDNISONE(PREDNISONE)(20 MILLIGRAM, TABLETS) [Concomitant]
     Route: 048
     Dates: start: 20210730
  11. ESTROGEL [Suspect]
     Active Substance: ESTRADIOL
  12. PRIMOGYNA(ESTRADIOL VALERATE)(2 MILLIGRAM, TABLETS) [Concomitant]
     Route: 048
     Dates: start: 20210824
  13. UTROGESTAN [Suspect]
     Active Substance: PROGESTERONE
     Route: 067
     Dates: start: 20210825
  14. INIBINA(ISOXSUPRINE HYDROCHLORIDE)(10 MILLIGRAM, TABLETS) [Concomitant]
     Route: 048
     Dates: start: 20210730

REACTIONS (6)
  - Overdose [None]
  - Off label use [None]
  - Vaginal haemorrhage [Recovered/Resolved with Sequelae]
  - Subchorionic haematoma [Unknown]
  - Abdominal pain [Not Recovered/Not Resolved]
  - Exposure during pregnancy [None]

NARRATIVE: CASE EVENT DATE: 20210730
